FAERS Safety Report 16808925 (Version 1)
Quarter: 2019Q4

REPORT INFORMATION
  Report Type: Spontaneous
  Country: US (occurrence: US)
  Receive Date: 20190913
  Receipt Date: 20190913
  Transmission Date: 20200122
  Serious: No
  Sender: FDA-Public Use
  Company Number: None

PATIENT
  Age: 3 Year
  Sex: Male

DRUGS (2)
  1. AMOXICILLIN AND CLAVULANATE [Suspect]
     Active Substance: AMOXICILLIN\CLAVULANIC ACID
     Indication: ANTIBIOTIC THERAPY
     Route: 048
  2. ONDANSETRON HCL 4MG/5ML [Concomitant]
     Dates: start: 20160826, end: 20190830

REACTIONS (3)
  - Liquid product physical issue [None]
  - Product colour issue [None]
  - Swelling face [None]

NARRATIVE: CASE EVENT DATE: 20190830
